FAERS Safety Report 20642150 (Version 3)
Quarter: 2022Q2

REPORT INFORMATION
  Report Type: Report from Study
  Country: DE (occurrence: None)
  Receive Date: 20220328
  Receipt Date: 20220609
  Transmission Date: 20220721
  Serious: Yes (Hospitalization)
  Sender: FDA-Public Use
  Company Number: DE-ROCHE-2999354

PATIENT
  Age: 36 Year
  Sex: Female
  Weight: 62 kg

DRUGS (18)
  1. ATEZOLIZUMAB [Suspect]
     Active Substance: ATEZOLIZUMAB
     Indication: Triple negative breast cancer
     Dosage: ON 07/DEC/2021, 08/FEB/2022, 01/MAR/2022 RECENT DOSE OF ATEZOLIZUMAB ADMINISTERED.
     Route: 041
     Dates: start: 20211123
  2. PACLITAXEL [Suspect]
     Active Substance: PACLITAXEL
     Indication: Triple negative breast cancer
     Dosage: ON 07/DEC/2021 MOST RECENT DOSE OF PACLITAXEL TAKEN
     Route: 042
     Dates: start: 20211207
  3. PACLITAXEL [Suspect]
     Active Substance: PACLITAXEL
     Dosage: ON 15/FEB/2022, 23/FEB/2022 MOST RECENT DOSE OF PACLITAXEL TAKEN
     Route: 042
     Dates: start: 20211207
  4. CARBOPLATIN [Suspect]
     Active Substance: CARBOPLATIN
     Indication: Triple negative breast cancer
     Dosage: ON 07/DEC/2021, 23/FEB/2022 MOST RECENT DOSE OF CARBOPLATIN TAKEN
     Route: 042
     Dates: start: 20211207
  5. CARBOPLATIN [Suspect]
     Active Substance: CARBOPLATIN
     Dosage: ON 15/FEB/2022, 23/FEB/2022 MOST RECENT DOSE OF CARBOPLATIN TAKEN
     Route: 042
     Dates: start: 20211207
  6. EPIRUBICIN [Suspect]
     Active Substance: EPIRUBICIN
     Indication: Triple negative breast cancer
     Route: 042
     Dates: start: 20220301, end: 20220301
  7. CYCLOPHOSPHAMIDE [Suspect]
     Active Substance: CYCLOPHOSPHAMIDE
     Indication: Triple negative breast cancer
     Route: 042
     Dates: start: 20220301, end: 20220301
  8. DEXAMETHASONE [Concomitant]
     Active Substance: DEXAMETHASONE
     Dates: start: 20211207, end: 20220208
  9. DEXAMETHASONE [Concomitant]
     Active Substance: DEXAMETHASONE
     Dates: start: 20220301
  10. DIMETHINDENE MALEATE [Concomitant]
     Active Substance: DIMETHINDENE MALEATE
     Dates: start: 20211207, end: 20220208
  11. MCP [Concomitant]
     Active Substance: METOCLOPRAMIDE HYDROCHLORIDE
     Dates: start: 20211207
  12. ZOLADEX [Concomitant]
     Active Substance: GOSERELIN ACETATE
     Dates: start: 20211118
  13. FERROUS GLUCONATE [Concomitant]
     Active Substance: FERROUS GLUCONATE
     Dates: start: 20211207
  14. EQUINOVO [Concomitant]
     Dates: start: 20211207
  15. ONDANSETRON [Concomitant]
     Active Substance: ONDANSETRON
     Dates: start: 20220301
  16. EMEND [Concomitant]
     Active Substance: APREPITANT
     Dates: start: 20220301
  17. MESNA [Concomitant]
     Active Substance: MESNA
     Dates: start: 20220301
  18. PEGFILGRASTIM [Concomitant]
     Active Substance: PEGFILGRASTIM
     Dates: start: 20220104

REACTIONS (2)
  - Pyrexia [Recovered/Resolved]
  - Febrile neutropenia [Recovered/Resolved]

NARRATIVE: CASE EVENT DATE: 20211208
